FAERS Safety Report 18711029 (Version 1)
Quarter: 2021Q1

REPORT INFORMATION
  Report Type: Report from Study
  Country: US (occurrence: US)
  Receive Date: 20210107
  Receipt Date: 20210107
  Transmission Date: 20210419
  Serious: Yes (Other)
  Sender: FDA-Public Use
  Company Number: US-BRISTOL-MYERS SQUIBB COMPANY-BMS-2021-000403

PATIENT
  Sex: Female

DRUGS (1)
  1. NIVOLUMAB [Suspect]
     Active Substance: NIVOLUMAB
     Indication: PRODUCT USED FOR UNKNOWN INDICATION
     Dosage: UNK
     Route: 065

REACTIONS (12)
  - Hepatic neoplasm [Unknown]
  - Muscular weakness [Unknown]
  - Fatigue [Unknown]
  - Neuropathy peripheral [Unknown]
  - Ammonia decreased [Unknown]
  - Vomiting [Unknown]
  - Loss of consciousness [Unknown]
  - Hypotension [Unknown]
  - Confusional state [Unknown]
  - Dehydration [Unknown]
  - Motion sickness [Unknown]
  - Mobility decreased [Unknown]
